FAERS Safety Report 9393903 (Version 5)
Quarter: 2013Q4

REPORT INFORMATION
  Report Type: Spontaneous
  Country: JP (occurrence: None)
  Receive Date: 20130705
  Receipt Date: 20131219
  Transmission Date: 20140711
  Serious: Yes (Hospitalization, Disabling)
  Sender: FDA-Public Use
  Company Number: AE-SPE-2013-019

PATIENT
  Age: 13 Year
  Sex: Male

DRUGS (4)
  1. MEIACT MS [Suspect]
     Indication: BACTERIAL INFECTION
     Dosage: 3 TABLETS/DAY
     Route: 048
     Dates: start: 20130405, end: 20130407
  2. CLARITH [Suspect]
     Indication: BACTERIAL INFECTION
     Dosage: 2 TABLETS/DAY
     Route: 048
     Dates: start: 20130116, end: 20130116
  3. CALONAL [Suspect]
     Indication: PYREXIA
     Dosage: 2 TABLETS PM
     Route: 048
     Dates: start: 20130119, end: 20130119
  4. ZANAMIVIR HYDRATE [Concomitant]

REACTIONS (4)
  - Tubulointerstitial nephritis [None]
  - Lymphocyte stimulation test positive [None]
  - Tubulointerstitial nephritis [None]
  - Drug hypersensitivity [None]
